FAERS Safety Report 8985895 (Version 1)
Quarter: 2012Q4

REPORT INFORMATION
  Report Type: 
  Country: US (occurrence: US)
  Receive Date: 20121226
  Receipt Date: 20121226
  Transmission Date: 20130627
  Serious: Yes (Life-Threatening, Hospitalization, Other)
  Sender: FDA-Public Use
  Company Number: US-ELI_LILLY_AND_COMPANY-US201201006962

PATIENT
  Age: 48 Year
  Sex: Female

DRUGS (14)
  1. BYETTA [Suspect]
     Dosage: 10 ug, bid
     Route: 058
     Dates: start: 200701, end: 200907
  2. OXYCODONE AND ACETAMINOPHEN [Concomitant]
     Dosage: 1 DF, prn
  3. TEKTURNA [Concomitant]
     Dosage: 300 mg, qd
  4. AMLODIPINE [Concomitant]
     Dosage: 10 mg, qd
  5. CETIRIZINE [Concomitant]
     Dosage: 10 mg, qd
  6. CLONAZEPAM [Concomitant]
     Dosage: 0.5 mg, each evening
  7. NEXIUM [Concomitant]
     Dosage: 40 mg, qd
  8. NEURONTIN [Concomitant]
     Dosage: 300 mg, tid
  9. HYDROCHLOROTHIAZIDE W/TRIAMTERENE [Concomitant]
     Dosage: UNK, qd
  10. METFORMIN [Concomitant]
     Dosage: 1000 mg, bid
  11. SINGULAR [Concomitant]
  12. OXYBUTYNIN [Concomitant]
     Dosage: 60 mg, qd
  13. PAROXETINE [Concomitant]
     Dosage: 60 mg, qd
  14. MICARDIS [Concomitant]
     Dosage: 80 mg, qd

REACTIONS (4)
  - Pancreatitis [Unknown]
  - Respiratory failure [Unknown]
  - Renal failure acute [Unknown]
  - Sepsis [Unknown]
